FAERS Safety Report 6822373-2 (Version None)
Quarter: 2010Q3

REPORT INFORMATION
  Report Type: 
  Country: None (occurrence: None)
  Receive Date: 20100708
  Receipt Date: 20100625
  Transmission Date: 20110219
  Serious: Yes (Other)
  Sender: FDA-Public Use
  Company Number: PHEH2009US17867

PATIENT
  Sex: Female

DRUGS (2)
  1. EXJADE [Suspect]
     Dosage: 1250 MG DAILY
     Route: 048
  2. EXJADE [Suspect]
     Dosage: UNK
     Route: 048

REACTIONS (6)
  - DIARRHOEA [None]
  - HEARING IMPAIRED [None]
  - NAUSEA [None]
  - RASH [None]
  - SURGERY [None]
  - VISION BLURRED [None]
